FAERS Safety Report 18924562 (Version 2)
Quarter: 2021Q1

REPORT INFORMATION
  Report Type: Other
  Country: US (occurrence: US)
  Receive Date: 20210223
  Receipt Date: 20210226
  Transmission Date: 20210420
  Serious: No
  Sender: FDA-Public Use
  Company Number: US-ROCHE-2774841

PATIENT
  Sex: Female

DRUGS (1)
  1. OCREVUS [Suspect]
     Active Substance: OCRELIZUMAB
     Indication: RELAPSING MULTIPLE SCLEROSIS
     Dosage: 300 MG ONCE IN 2 WEEKS THEN 600 MG ONCE IN 6 MONTHS.?ON 06/JUL/2020, RECEIVED OCRELIZUMAB OF AN UNKN
     Route: 042
     Dates: start: 20200623

REACTIONS (2)
  - Oropharyngeal pain [Unknown]
  - Candida infection [Recovered/Resolved]
